FAERS Safety Report 15411622 (Version 1)
Quarter: 2018Q3

REPORT INFORMATION
  Report Type: Spontaneous
  Country: BR (occurrence: BR)
  Receive Date: 20180921
  Receipt Date: 20180921
  Transmission Date: 20181010
  Serious: Yes (Other)
  Sender: FDA-Public Use
  Company Number: BR-AMGEN-BRASP2018131529

PATIENT
  Age: 55 Year
  Sex: Female

DRUGS (1)
  1. ENBREL [Suspect]
     Active Substance: ETANERCEPT
     Indication: PRODUCT USED FOR UNKNOWN INDICATION
     Dosage: UNK
     Route: 065
     Dates: start: 2013

REACTIONS (6)
  - Abdominal pain [Unknown]
  - Urinary tract infection [Unknown]
  - Gastrointestinal infection [Unknown]
  - Thrombosis [Unknown]
  - Diarrhoea [Recovered/Resolved]
  - Abdominal distension [Unknown]
